FAERS Safety Report 15194928 (Version 2)
Quarter: 2019Q1

REPORT INFORMATION
  Report Type: Spontaneous
  Country: US (occurrence: US)
  Receive Date: 20180725
  Receipt Date: 20190124
  Transmission Date: 20190417
  Serious: Yes (Other)
  Sender: FDA-Public Use
  Company Number: US-BAYER-2018-139957

PATIENT
  Age: 27 Year
  Sex: Female
  Weight: 82.55 kg

DRUGS (1)
  1. SKYLA [Suspect]
     Active Substance: LEVONORGESTREL
     Indication: CONTRACEPTION
     Dosage: 14 MCG/24HR, CONT
     Route: 015
     Dates: start: 20170623, end: 20180710

REACTIONS (3)
  - Pregnancy with contraceptive device [None]
  - Drug ineffective [None]
  - Device dislocation [None]

NARRATIVE: CASE EVENT DATE: 2017
